FAERS Safety Report 21487572 (Version 1)
Quarter: 2022Q4

REPORT INFORMATION
  Report Type: Spontaneous
  Country: CZ (occurrence: CZ)
  Receive Date: 20221020
  Receipt Date: 20221020
  Transmission Date: 20230113
  Serious: Yes (Other)
  Sender: FDA-Public Use
  Company Number: CZ-BRISTOL-MYERS SQUIBB COMPANY-2022-124168

PATIENT
  Age: 62 Year
  Sex: Female

DRUGS (4)
  1. NIVOLUMAB [Suspect]
     Active Substance: NIVOLUMAB
     Indication: Non-small cell lung cancer
     Dosage: DOSE: UNAVAILABLE; FREQ: UNAVAILABLE
     Route: 065
     Dates: start: 202203
  2. IPILIMUMAB [Suspect]
     Active Substance: IPILIMUMAB
     Indication: Non-small cell lung cancer
     Dosage: DOSE: UNAVAILABLE; FREQ: UNAVAILABLE
     Route: 065
     Dates: start: 202203
  3. CARBOPLATIN [Suspect]
     Active Substance: CARBOPLATIN
     Indication: Non-small cell lung cancer
     Dosage: DOSE: UNAVAILABLE; FREQ: UNAVAILABLE
     Route: 065
     Dates: start: 202203
  4. PEMETREXED [Suspect]
     Active Substance: PEMETREXED
     Indication: Non-small cell lung cancer
     Dosage: DOSE: UNAVAILABLE; FREQ: UNAVAILABLE
     Route: 065
     Dates: start: 202203

REACTIONS (2)
  - Liver disorder [Unknown]
  - Condition aggravated [Unknown]

NARRATIVE: CASE EVENT DATE: 20220101
